FAERS Safety Report 6601927-2 (Version None)
Quarter: 2010Q1

REPORT INFORMATION
  Report Type: 
  Country: None (occurrence: None)
  Receive Date: 20100218
  Receipt Date: 20100204
  Transmission Date: 20100710
  Serious: Yes (Other)
  Sender: FDA-Public Use
  Company Number: DE-1180830

PATIENT
  Age: 70 Year
  Sex: Female

DRUGS (5)
  1. AZOPT [Suspect]
     Dosage: 1 GTT BID OU, OPHTHALMIC
     Route: 047
     Dates: start: 20050101, end: 20090801
  2. TAFLUPROST (TAFLUPROST) [Concomitant]
  3. SIMVASTATIN [Concomitant]
  4. DICLOFENAC SODIUM [Concomitant]
  5. CETIRIZINE HCL [Concomitant]

REACTIONS (2)
  - BRONCHITIS [None]
  - PHARYNGITIS [None]
